FAERS Safety Report 23983260 (Version 1)
Quarter: 2024Q2

REPORT INFORMATION
  Report Type: Report from Study
  Country: US (occurrence: US)
  Receive Date: 20240617
  Receipt Date: 20240617
  Transmission Date: 20240715
  Serious: Yes (Hospitalization)
  Sender: FDA-Public Use
  Company Number: US-Eisai-EC-2024-166651

PATIENT
  Age: 43 Year
  Sex: Male

DRUGS (1)
  1. LENVIMA [Suspect]
     Active Substance: LENVATINIB
     Indication: Hepatic cancer
     Route: 048
     Dates: start: 20240506, end: 202406

REACTIONS (12)
  - Blister [Unknown]
  - Burning sensation [Unknown]
  - Tongue blistering [Unknown]
  - Genital blister [Unknown]
  - Gait disturbance [Unknown]
  - Blood sodium decreased [Unknown]
  - Blood electrolytes decreased [Unknown]
  - Ascites [Unknown]
  - Glossodynia [Unknown]
  - Tongue discomfort [Unknown]
  - Tongue dry [Unknown]
  - Acne [Unknown]

NARRATIVE: CASE EVENT DATE: 20240101
